FAERS Safety Report 10401582 (Version 2)
Quarter: 2014Q3

REPORT INFORMATION
  Report Type: Spontaneous
  Country: MX (occurrence: MX)
  Receive Date: 20140822
  Receipt Date: 20140902
  Transmission Date: 20150326
  Serious: Yes (Hospitalization)
  Sender: FDA-Public Use
  Company Number: PHHY2014MX103431

PATIENT
  Age: 20 Year
  Sex: Female

DRUGS (2)
  1. PHENYTOIN. [Suspect]
     Active Substance: PHENYTOIN
     Indication: GENERALISED TONIC-CLONIC SEIZURE
     Dosage: 100 MG, Q8H
     Route: 048
  2. CARBAMAZEPINE. [Suspect]
     Active Substance: CARBAMAZEPINE
     Indication: CONVULSION

REACTIONS (22)
  - Pyrexia [Recovering/Resolving]
  - Ulcerative keratitis [Recovering/Resolving]
  - Cheilitis [Recovering/Resolving]
  - Generalised erythema [Recovering/Resolving]
  - Haemolysis [Recovering/Resolving]
  - Drug reaction with eosinophilia and systemic symptoms [Unknown]
  - Papule [Recovering/Resolving]
  - Cough [Recovering/Resolving]
  - Transaminases increased [Recovering/Resolving]
  - Face oedema [Recovering/Resolving]
  - Eosinophilia [Recovering/Resolving]
  - Dysphagia [Recovering/Resolving]
  - Renal failure acute [Not Recovered/Not Resolved]
  - Rash maculo-papular [Recovering/Resolving]
  - Dysuria [Recovering/Resolving]
  - Decreased appetite [Recovering/Resolving]
  - Fatigue [Recovering/Resolving]
  - Asthenia [Recovering/Resolving]
  - Glossitis [Recovering/Resolving]
  - Pruritus [Recovering/Resolving]
  - Dyspnoea [Not Recovered/Not Resolved]
  - Interstitial lung disease [Recovering/Resolving]
